FAERS Safety Report 4684170-6 (Version None)
Quarter: 2005Q2

REPORT INFORMATION
  Report Type: 
  Country: None (occurrence: None)
  Receive Date: 20050607
  Receipt Date: 20041203
  Transmission Date: 20051028
  Serious: Yes (Other)
  Sender: FDA-Public Use
  Company Number: GB-GLAXOSMITHKLINE-B0359658A

PATIENT
  Sex: Female

DRUGS (9)
  1. PAROXETINE HCL [Suspect]
     Route: 065
  2. AMITRIPTYLINE [Concomitant]
  3. TRIDESTRA [Concomitant]
  4. SOLPADOL [Concomitant]
  5. MELLARIL [Concomitant]
  6. ATORVASTATIN CALCIUM [Concomitant]
  7. PARACETAMOL [Concomitant]
  8. STELAZINE [Concomitant]
  9. ALCOHOL [Concomitant]

REACTIONS (14)
  - ALCOHOL PROBLEM [None]
  - ANXIETY [None]
  - COMPLETED SUICIDE [None]
  - DECREASED APPETITE [None]
  - DEPRESSED MOOD [None]
  - HYPERHIDROSIS [None]
  - HYPERSOMNIA [None]
  - ILL-DEFINED DISORDER [None]
  - INTENTIONAL MISUSE [None]
  - MALAISE [None]
  - OVERDOSE [None]
  - PALPITATIONS [None]
  - SUICIDAL IDEATION [None]
  - TREMOR [None]
